FAERS Safety Report 23406633 (Version 6)
Quarter: 2025Q2

REPORT INFORMATION
  Report Type: Spontaneous
  Country: CZ (occurrence: CZ)
  Receive Date: 20240116
  Receipt Date: 20250515
  Transmission Date: 20250716
  Serious: Yes (Hospitalization)
  Sender: SANDOZ
  Company Number: CZ-BAXTER-2023BAX032085

PATIENT
  Age: 49 Year
  Sex: Female
  Weight: 69 kg

DRUGS (20)
  1. CYCLOPHOSPHAMIDE [Suspect]
     Active Substance: CYCLOPHOSPHAMIDE
     Indication: Non-Hodgkin^s lymphoma
     Dosage: 1320 MG, Q3W,EVERY 3 WEEKS, ONGOING
     Route: 042
     Dates: start: 20230904
  2. DOXORUBICIN [Suspect]
     Active Substance: DOXORUBICIN
     Dosage: 88 MG CYCLES 1 TO 6 ON DAY 1 OF EACH CYCLE, EVERY 3 WEEKS
     Route: 042
     Dates: start: 20231002
  3. DOXORUBICIN [Suspect]
     Active Substance: DOXORUBICIN
     Indication: Non-Hodgkin^s lymphoma
     Dosage: 88 MG, Q3W,EVERY 3 WEEKS, ONGOING
     Route: 042
     Dates: start: 20230904
  4. EPCORITAMAB [Suspect]
     Active Substance: EPCORITAMAB
     Route: 058
     Dates: start: 20231002, end: 20231002
  5. EPCORITAMAB [Suspect]
     Active Substance: EPCORITAMAB
     Indication: Non-Hodgkin^s lymphoma
     Route: 058
     Dates: start: 20230904, end: 20230904
  6. EPCORITAMAB [Suspect]
     Active Substance: EPCORITAMAB
     Route: 058
     Dates: start: 20230911, end: 20230911
  7. IBRUTINIB [Suspect]
     Active Substance: IBRUTINIB
     Indication: Non-Hodgkin^s lymphoma
     Route: 065
  8. POLATUZUMAB VEDOTIN [Suspect]
     Active Substance: POLATUZUMAB VEDOTIN
     Dosage: 126 MG CYCLES 1 TO 6 ON DAY 1 OF EACH  CYCLE, EVERY 3 WEEKS
     Route: 042
     Dates: start: 20231002
  9. POLATUZUMAB VEDOTIN [Suspect]
     Active Substance: POLATUZUMAB VEDOTIN
     Indication: Non-Hodgkin^s lymphoma
     Dosage: 126 MG, Q3W,EVERY 3 WEEKS, ONGOING
     Route: 042
     Dates: start: 20230904
  10. POLATUZUMAB VEDOTIN [Suspect]
     Active Substance: POLATUZUMAB VEDOTIN
     Route: 065
  11. PREDNISONE [Suspect]
     Active Substance: PREDNISONE
     Dosage: 100 MG D1-5, C1-6, EVERY 1 DAYS, ONGOING
     Route: 048
     Dates: start: 20230904
  12. PREDNISONE [Suspect]
     Active Substance: PREDNISONE
     Route: 048
     Dates: start: 20231002
  13. PREDNISONE [Suspect]
     Active Substance: PREDNISONE
     Indication: Non-Hodgkin^s lymphoma
     Route: 048
     Dates: start: 20230904
  14. RITUXIMAB [Suspect]
     Active Substance: RITUXIMAB
     Indication: Non-Hodgkin^s lymphoma
     Dosage: 660 MG, EVERY 3 WEEKS,ONGOING
     Route: 042
     Dates: start: 20230904
  15. VENETOCLAX [Suspect]
     Active Substance: VENETOCLAX
     Indication: Non-Hodgkin^s lymphoma
     Route: 065
  16. FILGRASTIM [Concomitant]
     Active Substance: FILGRASTIM
     Indication: Prophylaxis
     Route: 065
  17. SULFAMETHOXAZOLE\TRIMETHOPRIM [Concomitant]
     Active Substance: SULFAMETHOXAZOLE\TRIMETHOPRIM
     Indication: Antifungal prophylaxis
     Route: 065
     Dates: start: 20230904
  18. BISULEPIN [Concomitant]
     Active Substance: BISULEPIN
     Indication: Prophylaxis
     Route: 065
     Dates: start: 20230904
  19. ACETAMINOPHEN [Concomitant]
     Active Substance: ACETAMINOPHEN
     Indication: Antipyresis
     Route: 065
     Dates: start: 20230904
  20. RAMIPRIL [Concomitant]
     Active Substance: RAMIPRIL
     Indication: Hypertension
     Route: 065
     Dates: start: 2019

REACTIONS (1)
  - COVID-19 [Recovered/Resolved]

NARRATIVE: CASE EVENT DATE: 20230918
